FAERS Safety Report 9057267 (Version 1)
Quarter: 2013Q1

REPORT INFORMATION
  Report Type: Report from Study
  Country: JP (occurrence: JP)
  Receive Date: 20130131
  Receipt Date: 20130131
  Transmission Date: 20140127
  Serious: Yes (Other)
  Sender: FDA-Public Use
  Company Number: JP-GLAXOSMITHKLINE-B0860298A

PATIENT
  Age: 60 None
  Sex: Female
  Weight: 58 kg

DRUGS (7)
  1. TYKERB [Suspect]
     Indication: BREAST CANCER
     Route: 048
     Dates: start: 20100419, end: 20110216
  2. TYKERB [Suspect]
     Indication: BREAST CANCER
     Route: 048
     Dates: start: 20110404, end: 20110516
  3. XELODA [Suspect]
     Route: 048
     Dates: start: 20100419, end: 20100421
  4. XELODA [Suspect]
     Route: 048
     Dates: start: 20100426, end: 20110216
  5. XELODA [Suspect]
     Route: 048
     Dates: start: 20110425, end: 20110516
  6. PYDOXAL [Concomitant]
     Indication: PROPHYLAXIS
     Route: 048
     Dates: start: 20101122
  7. HIRUDOID [Concomitant]
     Indication: PROPHYLAXIS
     Route: 061
     Dates: start: 20100422

REACTIONS (3)
  - Loss of consciousness [Recovered/Resolved]
  - Chest discomfort [Recovered/Resolved]
  - Nausea [Recovered/Resolved]
